FAERS Safety Report 10254857 (Version 1)
Quarter: 2014Q2

REPORT INFORMATION
  Report Type: Spontaneous
  Country: US (occurrence: None)
  Receive Date: 20140620
  Receipt Date: 20140620
  Transmission Date: 20141212
  Serious: Yes (Disabling)
  Sender: FDA-Public Use
  Company Number: None

PATIENT
  Age: 35 Year
  Sex: Female
  Weight: 72.58 kg

DRUGS (1)
  1. LEVOFLOXACIN [Suspect]

REACTIONS (3)
  - Hallucination [None]
  - Hallucination, auditory [None]
  - Nightmare [None]
